FAERS Safety Report 20455881 (Version 1)
Quarter: 2022Q1

REPORT INFORMATION
  Report Type: Spontaneous
  Country: US (occurrence: US)
  Receive Date: 20220210
  Receipt Date: 20220210
  Transmission Date: 20220423
  Serious: No
  Sender: FDA-Public Use
  Company Number: US-TRIS PHARMA, INC.-22US010051

PATIENT

DRUGS (2)
  1. DYANAVEL XR [Suspect]
     Active Substance: AMPHETAMINE
     Indication: Attention deficit hyperactivity disorder
     Dosage: 3 MILLILITRE, QD
     Route: 048
     Dates: start: 20220202
  2. DYANAVEL XR [Suspect]
     Active Substance: AMPHETAMINE
     Dosage: 1 MILLILITRE, QD
     Route: 048
     Dates: start: 20220127, end: 20220201

REACTIONS (1)
  - Headache [Recovered/Resolved]

NARRATIVE: CASE EVENT DATE: 20220127
